FAERS Safety Report 14690802 (Version 1)
Quarter: 2018Q1

REPORT INFORMATION
  Report Type: Spontaneous
  Country: CA (occurrence: CA)
  Receive Date: 20180328
  Receipt Date: 20180328
  Transmission Date: 20180509
  Serious: Yes (Other)
  Sender: FDA-Public Use
  Company Number: CA-FERRINGPH-2016FE02395

PATIENT

DRUGS (1)
  1. PICO-SALAX [Suspect]
     Active Substance: ANHYDROUS CITRIC ACID\MAGNESIUM OXIDE\SODIUM PICOSULFATE
     Indication: BOWEL PREPARATION
     Dosage: 4X 16.1 G/150ML WATER, DURING 3 DAYS
     Route: 048
     Dates: start: 20150713, end: 20150715

REACTIONS (7)
  - Proctalgia [Recovered/Resolved]
  - Skin discolouration [Recovered/Resolved]
  - Therapeutic response changed [Unknown]
  - Abdominal pain [Recovered/Resolved]
  - Cold sweat [Recovered/Resolved]
  - Tremor [Recovered/Resolved]
  - Off label use [Recovered/Resolved]

NARRATIVE: CASE EVENT DATE: 20150714
